FAERS Safety Report 17945975 (Version 3)
Quarter: 2021Q1

REPORT INFORMATION
  Report Type: Spontaneous
  Country: IT (occurrence: IT)
  Receive Date: 20200625
  Receipt Date: 20210202
  Transmission Date: 20210419
  Serious: Yes (Life-Threatening, Hospitalization, Other)
  Sender: FDA-Public Use
  Company Number: NVSC2020IT175335

PATIENT
  Age: 29 Year
  Sex: Female

DRUGS (24)
  1. BORTEZOMIB. [Suspect]
     Active Substance: BORTEZOMIB
     Indication: ENCEPHALITIS AUTOIMMUNE
     Dosage: ON DAYS 1, 4, 8 AND 11 OF EACH CYCLE
     Route: 042
  2. MIDAZOLAM. [Concomitant]
     Active Substance: MIDAZOLAM
     Indication: SEDATION
     Dosage: UNK(INFUSION ADMINISTRATION)
     Route: 065
  3. METHYLPREDNISOLONE. [Suspect]
     Active Substance: METHYLPREDNISOLONE
     Indication: ENCEPHALITIS AUTOIMMUNE
     Dosage: 1 G BOLUSES (7 DAYS) (BOLUS ADMINISTRATION)
     Route: 065
  4. TOPIRAMATE. [Suspect]
     Active Substance: TOPIRAMATE
     Indication: SEIZURE
     Dosage: UNK, FULL DOSAGE
     Route: 065
  5. TRAMADOL. [Suspect]
     Active Substance: TRAMADOL
     Indication: ENCEPHALITIS AUTOIMMUNE
  6. CLOBAZAM. [Suspect]
     Active Substance: CLOBAZAM
     Indication: SEIZURE
  7. PERAMPANEL [Suspect]
     Active Substance: PERAMPANEL
     Indication: MOVEMENT DISORDER
     Dosage: UNK, FULL DOSAGE
     Route: 065
  8. PHENOBARBITAL. [Suspect]
     Active Substance: PHENOBARBITAL
     Indication: SEIZURE
  9. CYCLOPHOSPHAMIDE. [Suspect]
     Active Substance: CYCLOPHOSPHAMIDE
     Indication: ENCEPHALITIS AUTOIMMUNE
     Dosage: 800 MG/M2
     Route: 042
  10. RITUXIMAB. [Concomitant]
     Active Substance: RITUXIMAB
     Indication: ENCEPHALITIS AUTOIMMUNE
     Dosage: 1 G (TWO DOSES WERE ADMINISTERED)
     Route: 042
  11. KETAMINE [Concomitant]
     Active Substance: KETAMINE
     Indication: SEDATION
     Dosage: UNK
     Route: 065
  12. LEVETIRACETAM. [Suspect]
     Active Substance: LEVETIRACETAM
     Indication: MOVEMENT DISORDER
     Dosage: UNK, FULL DOSAGE
     Route: 065
  13. LACOSAMIDE. [Suspect]
     Active Substance: LACOSAMIDE
     Indication: MOVEMENT DISORDER
  14. PERAMPANEL [Suspect]
     Active Substance: PERAMPANEL
     Indication: SEIZURE
  15. PROPOFOL. [Concomitant]
     Active Substance: PROPOFOL
     Indication: SEDATION
     Dosage: UNK,INFUSION ADMINISTRATION
     Route: 065
  16. TOPIRAMATE. [Suspect]
     Active Substance: TOPIRAMATE
     Indication: MOVEMENT DISORDER
  17. LACOSAMIDE. [Suspect]
     Active Substance: LACOSAMIDE
     Indication: SEIZURE
     Dosage: UNK, FULL DOSAGE
     Route: 065
  18. TRAMADOL. [Suspect]
     Active Substance: TRAMADOL
     Indication: DYSKINESIA
     Dosage: 100 MILLIGRAM, QID
     Route: 065
  19. TETRABENAZINE. [Suspect]
     Active Substance: TETRABENAZINE
     Indication: ENCEPHALITIS AUTOIMMUNE
     Dosage: 75 MG, QD
     Route: 065
  20. PHENYTOIN. [Suspect]
     Active Substance: PHENYTOIN
     Indication: SEIZURE
     Dosage: UNK, FULL DOSAGE
     Route: 065
  21. PHENOBARBITAL. [Suspect]
     Active Substance: PHENOBARBITAL
     Indication: MOVEMENT DISORDER
     Dosage: UNK, FULL DOSAGE
     Route: 065
  22. LEVETIRACETAM. [Suspect]
     Active Substance: LEVETIRACETAM
     Indication: SEIZURE
  23. CLOBAZAM. [Suspect]
     Active Substance: CLOBAZAM
     Indication: MOVEMENT DISORDER
     Dosage: UNK, FULL DOSAGE
     Route: 065
  24. PHENYTOIN. [Suspect]
     Active Substance: PHENYTOIN
     Indication: MOVEMENT DISORDER

REACTIONS (8)
  - Neurological decompensation [Unknown]
  - Seizure [Unknown]
  - Infection [Unknown]
  - Dyskinesia [Unknown]
  - Drug ineffective [Unknown]
  - Off label use [Unknown]
  - Coma [Unknown]
  - Catatonia [Unknown]
